FAERS Safety Report 7413094 (Version 4)
Quarter: 2012Q4

REPORT INFORMATION
  Report Type: Report from Study
  Country: US (occurrence: US)
  Receive Date: 20100608
  Receipt Date: 20121205
  Transmission Date: 20130627
  Serious: Yes (Death, Life-Threatening, Hospitalization)
  Sender: FDA-Public Use
  Company Number: US-SANOFI-AVENTIS-2010SA031871

PATIENT
  Age: 66 Year
  Sex: Male

DRUGS (13)
  1. TAXOTERE [Suspect]
     Indication: PROSTATE CANCER
     Route: 051
     Dates: start: 20100510, end: 20100510
  2. BLINDED THERAPY [Suspect]
     Indication: PROSTATE CANCER
     Route: 048
     Dates: start: 20100510, end: 20100516
  3. PREDNISONE [Suspect]
     Indication: PROSTATE CANCER
     Route: 048
     Dates: start: 20100510
  4. DEXAMETHASONE [Suspect]
     Indication: PREMEDICATION
     Dosage: 8 mg at 12 hours, 3 hours, and 1 hour prior to docetaxel infusion as premedication.
     Route: 065
  5. NAPROSYN [Concomitant]
  6. BUMETANIDE [Concomitant]
  7. WARFARIN [Concomitant]
  8. TERAZOSIN [Concomitant]
  9. SIMVASTATIN [Concomitant]
  10. BENAZEPRIL [Concomitant]
  11. DIGOXIN [Concomitant]
  12. COMPAZINE [Concomitant]
  13. KLOR-CON [Concomitant]

REACTIONS (2)
  - Acute respiratory failure [Fatal]
  - Febrile neutropenia [Not Recovered/Not Resolved]
